FAERS Safety Report 7325444-X (Version None)
Quarter: 2011Q1

REPORT INFORMATION
  Report Type: 
  Country: None (occurrence: None)
  Receive Date: 20110302
  Receipt Date: 20110222
  Transmission Date: 20110831
  Serious: Yes (Death, Life-Threatening, Hospitalization)
  Sender: FDA-Public Use
  Company Number: JP-JNJFOC-20110106264

PATIENT
  Sex: Female
  Weight: 57 kg

DRUGS (31)
  1. DOXIL [Suspect]
     Indication: OVARIAN CANCER RECURRENT
     Route: 042
  2. FUTHAN [Concomitant]
     Indication: DISSEMINATED INTRAVASCULAR COAGULATION
     Route: 041
  3. DOXIL [Suspect]
     Route: 042
  4. ZOSYN [Suspect]
     Indication: INTERSTITIAL LUNG DISEASE
     Route: 041
  5. NORVASC [Concomitant]
     Indication: HYPERTENSION
     Route: 048
  6. ZITHROMAX [Concomitant]
     Indication: PROPHYLAXIS
     Route: 048
  7. MINOMYCIN [Concomitant]
     Indication: PYREXIA
     Route: 065
  8. ELASPOL [Concomitant]
     Indication: INTERSTITIAL LUNG DISEASE
     Route: 041
  9. DOXIL [Suspect]
     Route: 042
  10. DAI-KENCHU-TO [Concomitant]
     Indication: CONSTIPATION
     Route: 048
  11. SOLU-MEDROL [Concomitant]
     Indication: INTERSTITIAL LUNG DISEASE
     Route: 041
  12. PREDOPA [Concomitant]
     Indication: BLOOD PRESSURE DECREASED
     Route: 041
  13. DALTEPARIN SODIUM [Concomitant]
     Indication: DISSEMINATED INTRAVASCULAR COAGULATION
     Route: 041
  14. DALTEPARIN SODIUM [Concomitant]
     Route: 041
  15. GOSHA-JINKI-GAN [Concomitant]
     Indication: NEUROPATHY PERIPHERAL
     Route: 048
  16. DORMICUM [Concomitant]
     Indication: RESTLESSNESS
     Route: 042
  17. REMINARON [Concomitant]
     Indication: DISSEMINATED INTRAVASCULAR COAGULATION
     Route: 041
  18. DOXIL [Suspect]
     Indication: MALIGNANT PERITONEAL NEOPLASM
     Route: 042
  19. MAGNESIUM OXIDE [Concomitant]
     Indication: CONSTIPATION
     Route: 048
  20. BENAMBAX [Concomitant]
     Indication: INTERSTITIAL LUNG DISEASE
     Route: 041
  21. MUCOSTA [Concomitant]
     Indication: PROPHYLAXIS
     Route: 048
  22. METHYCOBAL [Concomitant]
     Indication: NEUROPATHY PERIPHERAL
     Route: 048
  23. BACTRIM [Concomitant]
     Indication: INTERSTITIAL LUNG DISEASE
     Route: 041
  24. SOLU-MEDROL [Concomitant]
     Route: 041
  25. RECOMODULIN [Concomitant]
     Indication: DISSEMINATED INTRAVASCULAR COAGULATION
     Route: 041
  26. PREDONINE [Concomitant]
     Indication: INTERSTITIAL LUNG DISEASE
     Route: 065
  27. CONCENTRATED HUMAN BLOOD PLATELETS [Concomitant]
     Indication: PLATELET COUNT DECREASED
     Route: 041
  28. HUMULIN R [Concomitant]
     Indication: DIABETES MELLITUS
     Route: 058
  29. SOLU-MEDROL [Concomitant]
     Route: 041
  30. VANCOMYCIN HYDROCHLORIDE [Concomitant]
     Route: 041
  31. PRODIF [Concomitant]
     Indication: FUNGAL INFECTION
     Route: 042

REACTIONS (13)
  - BLOOD PRESSURE DECREASED [None]
  - MALAISE [None]
  - PANCYTOPENIA [None]
  - DECREASED APPETITE [None]
  - DEHYDRATION [None]
  - HEPATIC FUNCTION ABNORMAL [None]
  - BONE MARROW FAILURE [None]
  - ANURIA [None]
  - DISSEMINATED INTRAVASCULAR COAGULATION [None]
  - CARDIAC FAILURE [None]
  - RESTLESSNESS [None]
  - DEEP VEIN THROMBOSIS [None]
  - INTERSTITIAL LUNG DISEASE [None]
